FAERS Safety Report 20769917 (Version 1)
Quarter: 2022Q2

REPORT INFORMATION
  Report Type: Spontaneous
  Country: SE (occurrence: SE)
  Receive Date: 20220429
  Receipt Date: 20220429
  Transmission Date: 20220721
  Serious: Yes (Other)
  Sender: FDA-Public Use
  Company Number: None

PATIENT
  Sex: Male

DRUGS (9)
  1. AMLODIPINE [Suspect]
     Active Substance: AMLODIPINE BESYLATE
     Indication: Essential hypertension
     Dates: end: 20210422
  2. Etrilect [Concomitant]
     Dosage: 15 ML IF NEEDED, MAXIMUM 60 ML / DAY , STRENGTH : 0.5 MG / ML + 1 MG / ML , UNIT DOSE : 60 ML, FREQU
     Dates: start: 20210412
  3. VIAGRA [Concomitant]
     Active Substance: SILDENAFIL CITRATE
     Dosage: UNIT DOSE : 100 MG , FREQUENCY TIME : 1 AS REQUIRED ,  STRENGTH : 100 MG
     Dates: start: 20191112
  4. INVICORP [Concomitant]
     Dosage: UNIT DOSE : 1 DF , FREQUENCY TIME : 1 AS REQUIRED , STRENGTH : 25 MICROGRAMS / 2 MG, FREQUENCY TIME
     Dates: start: 20200304
  5. JANUVIA [Concomitant]
     Active Substance: SITAGLIPTIN PHOSPHATE
     Dosage: STRENGTH : 50 MG
     Dates: start: 20170928
  6. Atorvastatin 1A Farma [Concomitant]
     Dosage: UNIT DOSE : 10 MG ,FREQUENCY TIME : 1 DAY , STRENGTH : 10 MG
     Dates: start: 20201019
  7. CAVERJECT [Concomitant]
     Active Substance: ALPROSTADIL
     Dosage: UNIT DOSE : 1 DF , FREQUENCY TIME : 1 AS REQUIRED , STRENGTH : 20 MCG , CAVERJECT DUAL 20 MIKROGRAM
     Dates: start: 20190520
  8. EZETIMIBE [Concomitant]
     Active Substance: EZETIMIBE
     Dosage: UNIT DOSE : 10 MG ,  FREQUENCY TIME : 1 DAYS , STRENGTH : 10 MG
     Dates: start: 20170928
  9. CANDESARTAN [Concomitant]
     Active Substance: CANDESARTAN
     Dosage: FREQUENCY TIME : 1 DAY
     Dates: start: 20210412

REACTIONS (1)
  - Erectile dysfunction [Not Recovered/Not Resolved]
